FAERS Safety Report 9726818 (Version 2)
Quarter: 2014Q1

REPORT INFORMATION
  Report Type: Report from Study
  Country: US (occurrence: US)
  Receive Date: 20131203
  Receipt Date: 20140127
  Transmission Date: 20141002
  Serious: Yes (Hospitalization, Other)
  Sender: FDA-Public Use
  Company Number: PHEH2013US024987

PATIENT
  Age: 24 Year
  Sex: Male

DRUGS (10)
  1. TOBI PODHALER [Suspect]
     Indication: CYSTIC FIBROSIS
     Dosage: 300 MG, BID
     Route: 055
  2. ALBUTEROL [Concomitant]
     Dosage: UNK UKN, UNK
  3. ZITHROMAX [Concomitant]
     Dosage: UNK UKN, UNK
  4. VIT D [Concomitant]
     Dosage: UNK UKN, UNK
  5. AQUADEKS [Concomitant]
     Dosage: UNK UKN, UNK
  6. PULMOZYME [Concomitant]
     Dosage: UNK UKN, UNK
  7. FLONASE [Concomitant]
     Dosage: UNK UKN, UNK
  8. CREON [Concomitant]
     Dosage: UNK UKN, UNK
  9. PREDNISONE [Concomitant]
     Dosage: UNK UKN, UNK
  10. PRILOSEC [Concomitant]
     Dosage: UNK UKN, UNK

REACTIONS (3)
  - Pulmonary congestion [Not Recovered/Not Resolved]
  - Viral upper respiratory tract infection [Unknown]
  - Infective pulmonary exacerbation of cystic fibrosis [Unknown]
